FAERS Safety Report 9644757 (Version 2)
Quarter: 2013Q4

REPORT INFORMATION
  Report Type: Report from Study
  Country: AU (occurrence: AU)
  Receive Date: 20131025
  Receipt Date: 20131104
  Transmission Date: 20140711
  Serious: Yes (Death)
  Sender: FDA-Public Use
  Company Number: PHHY2013AU120394

PATIENT
  Sex: Female

DRUGS (2)
  1. ACLASTA [Suspect]
     Dosage: 5 MG, UNK
     Route: 042
     Dates: start: 20111024
  2. ACLASTA [Suspect]
     Dosage: 5 MG, UNK
     Route: 042
     Dates: start: 20121022

REACTIONS (4)
  - Renal failure [Fatal]
  - Pneumonia aspiration [Fatal]
  - Hiatus hernia [Fatal]
  - Renal impairment [Fatal]
